FAERS Safety Report 10214519 (Version 1)
Quarter: 2014Q2

REPORT INFORMATION
  Report Type: Spontaneous
  Country: IT (occurrence: IT)
  Receive Date: 20140603
  Receipt Date: 20140603
  Transmission Date: 20141212
  Serious: Yes (Hospitalization)
  Sender: FDA-Public Use
  Company Number: IT-PFIZER INC-2014149911

PATIENT
  Age: 34 Year
  Sex: Female

DRUGS (4)
  1. EFEXOR ER [Suspect]
     Dosage: 375 MG, TOTAL
     Route: 048
     Dates: start: 20140512
  2. DEPAKIN CHRONO [Suspect]
     Dosage: 900 MG, TOTAL
     Route: 048
     Dates: start: 20140512
  3. EN [Suspect]
     Dosage: 5 MG, TOTAL
     Route: 048
     Dates: start: 20140512
  4. CARBOLITHIUM [Suspect]
     Dosage: 6 G, TOTAL
     Route: 048
     Dates: start: 20140512

REACTIONS (1)
  - Drug abuse [Not Recovered/Not Resolved]
